FAERS Safety Report 20931566 (Version 3)
Quarter: 2024Q1

REPORT INFORMATION
  Report Type: Spontaneous
  Country: US (occurrence: US)
  Receive Date: 20220608
  Receipt Date: 20240220
  Transmission Date: 20240410
  Serious: No
  Sender: FDA-Public Use
  Company Number: US-PFIZER INC-202200789176

PATIENT
  Age: 73 Year
  Sex: Female

DRUGS (2)
  1. IBRANCE [Suspect]
     Active Substance: PALBOCICLIB
     Indication: Neoplasm malignant
     Dosage: 100 MG
     Dates: start: 20220601
  2. IBRANCE [Suspect]
     Active Substance: PALBOCICLIB
     Dosage: 75 MG/1 TABLET DAILY ON DAYS 1-21 OF 28 DAY CYCLE, 7 DAYS OFF
     Route: 048

REACTIONS (3)
  - Off label use [Unknown]
  - Taste disorder [Unknown]
  - Tongue disorder [Unknown]

NARRATIVE: CASE EVENT DATE: 20220101
